FAERS Safety Report 11865333 (Version 2)
Quarter: 2016Q1

REPORT INFORMATION
  Report Type: Spontaneous
  Country: FR (occurrence: FR)
  Receive Date: 20151223
  Receipt Date: 20160325
  Transmission Date: 20160526
  Serious: Yes (Other)
  Sender: FDA-Public Use
  Company Number: FR-SA-2015SA212838

PATIENT
  Age: 93 Year
  Sex: Female

DRUGS (8)
  1. PREGABALIN. [Suspect]
     Active Substance: PREGABALIN
     Route: 065
  2. PANTOPRAZOLE [Concomitant]
     Active Substance: PANTOPRAZOLE SODIUM
  3. VALSARTAN. [Suspect]
     Active Substance: VALSARTAN
     Route: 065
  4. SEROPLEX [Suspect]
     Active Substance: ESCITALOPRAM OXALATE
     Route: 065
  5. MIANSERIN HYDROCHLORIDE [Suspect]
     Active Substance: MIANSERIN HYDROCHLORIDE
     Route: 065
  6. ALPRAZOLAM. [Suspect]
     Active Substance: ALPRAZOLAM
     Route: 065
  7. TRAMADOL BASE [Suspect]
     Active Substance: TRAMADOL
     Route: 065
  8. LASILIX [Suspect]
     Active Substance: FUROSEMIDE
     Route: 065

REACTIONS (5)
  - Somnolence [Unknown]
  - Depressed level of consciousness [Unknown]
  - Disorientation [Unknown]
  - Bradypnoea [Unknown]
  - Hypotension [Unknown]

NARRATIVE: CASE EVENT DATE: 20150811
